FAERS Safety Report 9494244 (Version 2)
Quarter: 2013Q4

REPORT INFORMATION
  Report Type: Spontaneous
  Country: US (occurrence: None)
  Receive Date: 20130830
  Receipt Date: 20131129
  Transmission Date: 20140711
  Serious: Yes (Hospitalization, Other)
  Sender: FDA-Public Use
  Company Number: ADR-2013-01508

PATIENT
  Sex: Male

DRUGS (1)
  1. BACLOFEN [Suspect]
     Indication: MUSCLE SPASTICITY
     Dosage: 799.4  CG/DAY

REACTIONS (4)
  - Pneumonia [None]
  - Device damage [None]
  - Pneumocephalus [None]
  - Device failure [None]
